FAERS Safety Report 17005163 (Version 1)
Quarter: 2019Q4

REPORT INFORMATION
  Report Type: Spontaneous
  Country: DE (occurrence: DE)
  Receive Date: 20191107
  Receipt Date: 20191107
  Transmission Date: 20200122
  Serious: Yes (Death)
  Sender: FDA-Public Use
  Company Number: NVSC2019DE002806

PATIENT
  Sex: Female

DRUGS (1)
  1. KYMRIAH [Suspect]
     Active Substance: TISAGENLECLEUCEL
     Indication: ACUTE LYMPHOCYTIC LEUKAEMIA RECURRENT
     Dosage: 1.4X 106/KG BODY WEIGHT, ONCE/SINGLE
     Route: 042
     Dates: start: 20190911, end: 20190911

REACTIONS (5)
  - Septic shock [Fatal]
  - Organ failure [Fatal]
  - Purpura fulminans [Fatal]
  - Bacterial sepsis [Fatal]
  - Cytokine release syndrome [Fatal]

NARRATIVE: CASE EVENT DATE: 20191004
